FAERS Safety Report 18728680 (Version 1)
Quarter: 2021Q1

REPORT INFORMATION
  Report Type: Spontaneous
  Country: FR (occurrence: FR)
  Receive Date: 20210112
  Receipt Date: 20210112
  Transmission Date: 20210419
  Serious: Yes (Hospitalization, Other)
  Sender: FDA-Public Use
  Company Number: FR-TEVA-2021-FR-1866275

PATIENT
  Age: 56 Year
  Sex: Male

DRUGS (1)
  1. ZOLPIDEM [Suspect]
     Active Substance: ZOLPIDEM TARTRATE
     Dosage: UP TO 10 CP PER DAY
     Route: 065

REACTIONS (6)
  - Confusional state [Recovered/Resolved]
  - Drug dependence [Unknown]
  - Epilepsy [Recovered/Resolved]
  - Overdose [Unknown]
  - Agitation [Recovered/Resolved]
  - Withdrawal syndrome [Recovered/Resolved]
